FAERS Safety Report 16025546 (Version 2)
Quarter: 2019Q2

REPORT INFORMATION
  Report Type: Spontaneous
  Country: KR (occurrence: KR)
  Receive Date: 20190302
  Receipt Date: 20190523
  Transmission Date: 20190711
  Serious: Yes (Hospitalization, Other)
  Sender: FDA-Public Use
  Company Number: KR-009507513-1902KOR011552

PATIENT
  Sex: Male

DRUGS (29)
  1. LIDOCAINE HYDROCHLORIDE. [Concomitant]
     Active Substance: LIDOCAINE HYDROCHLORIDE
     Dosage: QUANTITY 1 DAY 1
     Dates: start: 20190211, end: 20190211
  2. OLIMEL N4E [Concomitant]
     Dosage: QUANTITY 1 DAYS 2
     Dates: start: 20190212, end: 20190215
  3. STERILE WATER [Concomitant]
     Active Substance: WATER
     Dosage: QUANTITY 1, DAYS 2
     Dates: start: 20190212, end: 20190215
  4. MORPHINE HYDROCHLORIDE [Concomitant]
     Active Substance: MORPHINE HYDROCHLORIDE
     Dosage: QUANTITY 1 DAYS 3
     Dates: start: 20190130, end: 20190215
  5. MUTERAN [Concomitant]
     Active Substance: ACETYLCYSTEINE
     Dosage: QUANTITY 2 DAY1, QUANTITY 4 DAY 1
     Dates: start: 20190214, end: 20190214
  6. CORTISOLU [Concomitant]
     Active Substance: HYDROCORTISONE SODIUM SUCCINATE
     Dosage: QUANTITY 1 DAY 1
     Dates: start: 20190130, end: 20190130
  7. SODIUM CHLORIDE. [Concomitant]
     Active Substance: SODIUM CHLORIDE
     Dosage: QUANTITY 1 DAY 1
     Dates: start: 20190208, end: 20190208
  8. OLIMEL N4E [Concomitant]
     Dosage: QUANTITY 1 DAY 1
     Dates: start: 20190127, end: 20190128
  9. OLIMEL N4E [Concomitant]
     Dosage: QUANTITY 1 DAYS 9
     Dates: start: 20190129, end: 20190211
  10. MIDAZOLAM BUKWANG [Concomitant]
     Dosage: QUANTITY 1 DAY 1
     Dates: start: 20190201, end: 20190201
  11. MORPHINE HYDROCHLORIDE [Concomitant]
     Active Substance: MORPHINE HYDROCHLORIDE
     Dosage: QUANTITY 2 DAYS 2
     Dates: start: 20190127, end: 20190128
  12. PERDIPINE [Concomitant]
     Active Substance: NICARDIPINE HYDROCHLORIDE
     Dosage: QUANTITY 1 DAY 1
     Dates: start: 20190208, end: 20190208
  13. SODIUM CHLORIDE. [Concomitant]
     Active Substance: SODIUM CHLORIDE
     Dosage: QUANTITY 1 DAYS 5
     Dates: start: 20190129, end: 20190215
  14. EPINEPHRINE. [Concomitant]
     Active Substance: EPINEPHRINE
     Dosage: QUANTITY 1, DAY 1
     Dates: start: 20190201, end: 20190201
  15. WATER, DISTILLED [Concomitant]
     Dosage: QUANTITY 1 DAY 1
     Dates: start: 20190201, end: 20190201
  16. MECKOOL [Concomitant]
     Dosage: QUANTITY 1 DAYS 6
     Dates: start: 20190128, end: 20190212
  17. SODIUM CHLORIDE. [Concomitant]
     Active Substance: SODIUM CHLORIDE
     Dosage: QUANTITY 1 DAYS 2
     Dates: start: 20190127, end: 20190128
  18. LIDOCAINE HYDROCHLORIDE. [Concomitant]
     Active Substance: LIDOCAINE HYDROCHLORIDE
     Dosage: QUANTITY 1 DAY 1
     Dates: start: 20190201, end: 20190201
  19. CORTISOLU [Concomitant]
     Active Substance: HYDROCORTISONE SODIUM SUCCINATE
     Dosage: QUANTITY 1 DAYS 3
     Dates: start: 20190129, end: 20190214
  20. FENTANYL CITRATE HANA [Concomitant]
     Dosage: QUANTITY 1 DAY 1
     Dates: start: 20190201, end: 20190201
  21. SODIUM CHLORIDE. [Concomitant]
     Active Substance: SODIUM CHLORIDE
     Dosage: QUANTITY 1 DAYS 3
     Dates: start: 20190130, end: 20190215
  22. KEYTRUDA [Suspect]
     Active Substance: PEMBROLIZUMAB
     Indication: LUNG CARCINOMA CELL TYPE UNSPECIFIED STAGE 0
     Dosage: QUANTITY:2, DAY:1
     Dates: start: 20190208, end: 20190208
  23. BC MORPHINE SULFATE [Concomitant]
     Dosage: QUANTITY 1 DAYS 12
     Dates: start: 20190128, end: 20190215
  24. SODIUM CHLORIDE. [Concomitant]
     Active Substance: SODIUM CHLORIDE
     Dosage: QUANTITY 1 DAYS 13
     Dates: start: 20190130, end: 20190211
  25. SODIUM CHLORIDE. [Concomitant]
     Active Substance: SODIUM CHLORIDE
     Dosage: QUANTITY 1 DAYS 5
     Dates: start: 20190131, end: 20190211
  26. PENIRAMIN [Concomitant]
     Dosage: QUANTITY 1 DAYS 3
     Dates: start: 20190130, end: 20190214
  27. STERILE WATER [Concomitant]
     Active Substance: WATER
     Dosage: QUANTITY 1, DAYS 9
     Dates: start: 20190129, end: 20190211
  28. WATER, DISTILLED [Concomitant]
     Dosage: QUANTITY 1 DAY 1
     Dates: start: 20190211, end: 20190211
  29. MORPHINE HYDROCHLORIDE [Concomitant]
     Active Substance: MORPHINE HYDROCHLORIDE
     Dosage: QUANTITY 1 DAYS 7
     Dates: start: 20190129, end: 20190211

REACTIONS (2)
  - Acute kidney injury [Unknown]
  - Radiation pneumonitis [Unknown]

NARRATIVE: CASE EVENT DATE: 20190215
